FAERS Safety Report 6899337-6 (Version None)
Quarter: 2010Q3

REPORT INFORMATION
  Report Type: 
  Country: None (occurrence: None)
  Receive Date: 20100802
  Receipt Date: 20090331
  Transmission Date: 20110219
  Serious: No
  Sender: FDA-Public Use
  Company Number: US-PFIZER INC-2009192117

PATIENT
  Sex: Male
  Weight: 90.7 kg

DRUGS (2)
  1. NORVASC [Suspect]
     Indication: HYPERTENSION
     Dosage: 5 MG, 2X/DAY
     Dates: start: 20090201
  2. GLUCOSAMINE [Concomitant]
     Dosage: UNK

REACTIONS (1)
  - DIARRHOEA [None]
